FAERS Safety Report 13496361 (Version 1)
Quarter: 2017Q2

REPORT INFORMATION
  Report Type: Spontaneous
  Country: US (occurrence: US)
  Receive Date: 20170428
  Receipt Date: 20170428
  Transmission Date: 20170830
  Serious: Yes (Other)
  Sender: FDA-Public Use
  Company Number: US-PURDUE-USA-2017-0138332

PATIENT
  Sex: Male

DRUGS (5)
  1. CALCIUM [Concomitant]
     Active Substance: CALCIUM
     Indication: GASTROOESOPHAGEAL REFLUX DISEASE
     Dosage: UNK
     Route: 065
  2. IMODIUM A-D [Suspect]
     Active Substance: LOPERAMIDE HYDROCHLORIDE
     Indication: DIARRHOEA
     Dosage: UNK
     Route: 065
  3. COLACE [Suspect]
     Active Substance: DOCUSATE SODIUM
     Indication: CONSTIPATION
     Dosage: 100 MG, PM
     Route: 048
     Dates: start: 20170422
  4. COLACE [Suspect]
     Active Substance: DOCUSATE SODIUM
     Dosage: UNK
     Route: 048
  5. TUMS                               /00193601/ [Concomitant]
     Active Substance: CALCIUM CARBONATE\MAGNESIUM CARBONATE\MAGNESIUM TRISILICATE
     Indication: GASTROOESOPHAGEAL REFLUX DISEASE
     Dosage: UNK
     Route: 065

REACTIONS (8)
  - Drug ineffective [Recovered/Resolved]
  - Expired product administered [Unknown]
  - Haematochezia [Unknown]
  - Abdominal pain upper [Unknown]
  - Drug effect increased [Unknown]
  - Gastrointestinal disorder [Unknown]
  - Neck pain [Unknown]
  - Constipation [Recovered/Resolved]

NARRATIVE: CASE EVENT DATE: 20170422
